FAERS Safety Report 12468082 (Version 1)
Quarter: 2016Q2

REPORT INFORMATION
  Report Type: Spontaneous
  Country: US (occurrence: None)
  Receive Date: 20160614
  Receipt Date: 20160614
  Transmission Date: 20160815
  Serious: No
  Sender: FDA-Public Use
  Company Number: None

PATIENT
  Age: 35 Year
  Sex: Male

DRUGS (1)
  1. XELODA [Suspect]
     Active Substance: CAPECITABINE
     Indication: PARAGANGLION NEOPLASM

REACTIONS (2)
  - Drug ineffective [None]
  - Hospitalisation [None]

NARRATIVE: CASE EVENT DATE: 20160613
